FAERS Safety Report 6711858-5 (Version None)
Quarter: 2010Q2

REPORT INFORMATION
  Report Type: 
  Country: None (occurrence: None)
  Receive Date: 20100505
  Receipt Date: 20100428
  Transmission Date: 20101027
  Serious: No
  Sender: FDA-Public Use
  Company Number: US-B.I. PHARMACEUTICALS,INC./RIDGEFIELD-2009-BP-13008BP

PATIENT
  Age: 61 Year
  Sex: Female

DRUGS (1)
  1. FLOMAX [Suspect]
     Dosage: 0.4 MG
     Route: 048

REACTIONS (4)
  - FEELING JITTERY [None]
  - NASAL CONGESTION [None]
  - ORTHOSTATIC HYPOTENSION [None]
  - TREMOR [None]
